FAERS Safety Report 14078174 (Version 1)
Quarter: 2017Q4

REPORT INFORMATION
  Report Type: Spontaneous
  Country: US (occurrence: US)
  Receive Date: 20171012
  Receipt Date: 20171012
  Transmission Date: 20180321
  Serious: No
  Sender: FDA-Public Use
  Company Number: US-MYLANLABS-2017M1017245

PATIENT
  Age: 53 Year
  Sex: Female

DRUGS (1)
  1. NITROFURANTOIN (MACROCRYSTALS) CAPSULES, USP [Suspect]
     Active Substance: NITROFURANTOIN
     Indication: PROPHYLAXIS URINARY TRACT INFECTION
     Dosage: 50 MG, QD
     Route: 048
     Dates: start: 20170309, end: 20170316

REACTIONS (1)
  - Urticaria [Unknown]

NARRATIVE: CASE EVENT DATE: 20170316
